FAERS Safety Report 5292728-9 (Version None)
Quarter: 2007Q2

REPORT INFORMATION
  Report Type: 
  Country: None (occurrence: None)
  Receive Date: 20070404
  Receipt Date: 20070329
  Transmission Date: 20071010
  Serious: Yes (Death, Hospitalization)
  Sender: FDA-Public Use
  Company Number: 2007-00886

PATIENT
  Age: 67 Year
  Sex: Female
  Weight: 104.7 kg

DRUGS (3)
  1. VELCADE [Suspect]
     Indication: MALIGNANT MELANOMA
     Dosage: 1.30 MG/M2, IV BOLUS
     Route: 040
     Dates: start: 20060724, end: 20060822
  2. TAXOL [Suspect]
     Indication: MALIGNANT MELANOMA
     Dosage: 175.00 MG/M2, INTRAVENOUS
     Route: 042
     Dates: start: 20060724, end: 20060815
  3. CARBOPLATIN [Suspect]
     Indication: MALIGNANT MELANOMA
     Dosage: INTRAVENOUS
     Route: 042
     Dates: start: 20060724, end: 20060815

REACTIONS (16)
  - ABDOMINAL PAIN [None]
  - ASTHENIA [None]
  - BOWEL SOUNDS ABNORMAL [None]
  - CHILLS [None]
  - DEHYDRATION [None]
  - DISEASE PROGRESSION [None]
  - HAEMORRHAGE [None]
  - HYPOPHOSPHATAEMIA [None]
  - LIVER TENDERNESS [None]
  - NAUSEA [None]
  - NEUTROPHIL COUNT DECREASED [None]
  - PLATELET COUNT DECREASED [None]
  - SUBCUTANEOUS ABSCESS [None]
  - URINARY TRACT INFECTION [None]
  - VOMITING [None]
  - WHITE BLOOD CELL COUNT DECREASED [None]
